FAERS Safety Report 21841700 (Version 5)
Quarter: 2023Q4

REPORT INFORMATION
  Report Type: Other
  Country: CN (occurrence: None)
  Receive Date: 20230110
  Receipt Date: 20231227
  Transmission Date: 20240110
  Serious: Yes (Hospitalization, Other)
  Sender: FDA-Public Use
  Company Number: CN-ROCHE-2748121

PATIENT
  Age: 36 Year
  Sex: Female
  Weight: 37 kg

DRUGS (5)
  1. AVASTIN [Suspect]
     Active Substance: BEVACIZUMAB
     Indication: Colon cancer
     Dosage: FORM OF ADMIN -100 MG.
     Route: 041
     Dates: start: 20160219
  2. AVASTIN [Suspect]
     Active Substance: BEVACIZUMAB
     Route: 041
     Dates: start: 20180523, end: 20201230
  3. AVASTIN [Suspect]
     Active Substance: BEVACIZUMAB
     Route: 041
     Dates: start: 20210309, end: 20211027
  4. AVASTIN [Suspect]
     Active Substance: BEVACIZUMAB
     Route: 041
     Dates: start: 20220119, end: 20220914
  5. AVASTIN [Suspect]
     Active Substance: BEVACIZUMAB
     Route: 041
     Dates: end: 20230913

REACTIONS (9)
  - Protein urine present [Unknown]
  - Hypertension [Unknown]
  - Discomfort [Unknown]
  - COVID-19 [Unknown]
  - Pneumonitis [Unknown]
  - Gingival disorder [Unknown]
  - Gingival bleeding [Unknown]
  - Intestinal operation [Recovered/Resolved]
  - Protein urine present [Unknown]
